FAERS Safety Report 6467309-1 (Version None)
Quarter: 2009Q4

REPORT INFORMATION
  Report Type: 
  Country: None (occurrence: None)
  Receive Date: 20091202
  Receipt Date: 20091124
  Transmission Date: 20100525
  Serious: Yes (Hospitalization, Other)
  Sender: FDA-Public Use
  Company Number: US-ELI_LILLY_AND_COMPANY-US200911006224

PATIENT
  Sex: Female

DRUGS (4)
  1. HUMALOG MIX 75/25 [Suspect]
  2. HUMALOG MIX 75/25 [Suspect]
  3. GLIPIZIDE [Concomitant]
  4. AMARYL [Concomitant]

REACTIONS (4)
  - CORONARY ARTERY BYPASS [None]
  - OEDEMA [None]
  - OEDEMA PERIPHERAL [None]
  - THROMBOSIS [None]
